FAERS Safety Report 18248716 (Version 2)
Quarter: 2020Q4

REPORT INFORMATION
  Report Type: Report from Study
  Country: None (occurrence: US)
  Receive Date: 20200909
  Receipt Date: 20201123
  Transmission Date: 20210113
  Serious: Yes (Hospitalization, Other)
  Sender: FDA-Public Use
  Company Number: US-ABBVIE-20K-163-3558473-00

PATIENT
  Sex: Male
  Weight: 90.8 kg

DRUGS (1)
  1. SKYRIZI [Suspect]
     Active Substance: RISANKIZUMAB-RZAA
     Indication: PSORIASIS
     Route: 058
     Dates: start: 2020, end: 202009

REACTIONS (3)
  - Gastrointestinal haemorrhage [Recovering/Resolving]
  - Hepatic cirrhosis [Recovering/Resolving]
  - Gastric antral vascular ectasia [Recovering/Resolving]

NARRATIVE: CASE EVENT DATE: 2020
